FAERS Safety Report 5799067-8 (Version None)
Quarter: 2008Q3

REPORT INFORMATION
  Report Type: 
  Country: None (occurrence: None)
  Receive Date: 20080702
  Receipt Date: 20080617
  Transmission Date: 20090109
  Serious: No
  Sender: FDA-Public Use
  Company Number: US-BOEHRINGER INGELHEIM GMBH, GERMANY-2008-BP-05519BP

PATIENT
  Sex: Female

DRUGS (9)
  1. SPIRIVA [Suspect]
     Indication: CHRONIC OBSTRUCTIVE PULMONARY DISEASE
     Route: 055
     Dates: start: 20040101
  2. DIAZEPAM [Concomitant]
     Indication: MUSCLE SPASMS
  3. METOPROLOL SUCCINATE [Concomitant]
     Indication: BLOOD PRESSURE
  4. LYRICA [Concomitant]
     Indication: FIBROMYALGIA
  5. CYMBALTA [Concomitant]
     Indication: DEPRESSION
  6. LOVASTATIN [Concomitant]
     Indication: BLOOD CHOLESTEROL INCREASED
  7. HYDROCHLOROTHIAZIDE [Concomitant]
  8. CLARITIN [Concomitant]
  9. NASONEX [Concomitant]

REACTIONS (5)
  - CHEST DISCOMFORT [None]
  - DYSPNOEA [None]
  - NERVOUSNESS [None]
  - PANIC ATTACK [None]
  - PNEUMONIA [None]
